FAERS Safety Report 7162241-2 (Version None)
Quarter: 2010Q4

REPORT INFORMATION
  Report Type: 
  Country: None (occurrence: None)
  Receive Date: 20101215
  Receipt Date: 20090923
  Transmission Date: 20110411
  Serious: Yes (Hospitalization, Other)
  Sender: FDA-Public Use
  Company Number: US-PFIZER INC-2009243659

PATIENT
  Age: 64 Year
  Sex: Female

DRUGS (13)
  1. LYRICA [Suspect]
     Dosage: 50 MG, 2X/DAY
     Dates: start: 20090701
  2. CELEBREX [Suspect]
     Dosage: UNK
  3. VYTORIN [Suspect]
     Dosage: UNK
  4. ZOCOR [Concomitant]
     Dosage: UNK
  5. ENALAPRIL [Concomitant]
     Dosage: UNK
  6. ACETYLSALICYLIC ACID [Concomitant]
     Dosage: UNK
  7. LASIX [Concomitant]
     Dosage: UNK
  8. PEPCID [Concomitant]
     Dosage: UNK
  9. PERCOCET [Concomitant]
     Dosage: UNK
  10. PLAVIX [Concomitant]
     Dosage: UNK
  11. ALISKIREN [Concomitant]
     Dosage: UNK
  12. POTASSIUM CHLORIDE [Concomitant]
     Dosage: UNK
  13. PROZAC [Concomitant]
     Dosage: UNK

REACTIONS (4)
  - NAUSEA [None]
  - PRESYNCOPE [None]
  - RENAL FAILURE [None]
  - RHABDOMYOLYSIS [None]
